FAERS Safety Report 4304258-9 (Version None)
Quarter: 2004Q1

REPORT INFORMATION
  Report Type: 
  Country: None (occurrence: None)
  Receive Date: 20040225
  Receipt Date: 20040213
  Transmission Date: 20041129
  Serious: Yes (Life-Threatening, Hospitalization)
  Sender: FDA-Public Use
  Company Number: WAES 0402AUS00166

PATIENT
  Age: 64 Year
  Sex: Male
  Weight: 70 kg

DRUGS (5)
  1. GEMFIBROZIL [Suspect]
     Route: 048
     Dates: end: 20031106
  2. NEFAZODONE HYDROCHLORIDE [Suspect]
     Indication: AFFECTIVE DISORDER
     Route: 048
     Dates: end: 20031106
  3. NEFAZODONE HYDROCHLORIDE [Suspect]
  4. OXAZEPAM [Concomitant]
     Route: 048
  5. ZOCOR [Suspect]
     Route: 048
     Dates: end: 20031106

REACTIONS (6)
  - ACUTE RESPIRATORY DISTRESS SYNDROME [None]
  - BLOOD CREATINE PHOSPHOKINASE INCREASED [None]
  - DRUG INTERACTION [None]
  - MYOGLOBINURIA [None]
  - RENAL FAILURE ACUTE [None]
  - RHABDOMYOLYSIS [None]
